FAERS Safety Report 11389621 (Version 1)
Quarter: 2015Q3

REPORT INFORMATION
  Report Type: Report from Study
  Country: ES (occurrence: ES)
  Receive Date: 20150817
  Receipt Date: 20150817
  Transmission Date: 20151125
  Serious: Yes (Hospitalization)
  Sender: FDA-Public Use
  Company Number: ES-ABBVIE-15P-144-1443380-00

PATIENT
  Sex: Female

DRUGS (1)
  1. DUODOPA [Suspect]
     Active Substance: CARBIDOPA\LEVODOPA
     Indication: PARKINSON^S DISEASE
     Route: 065
     Dates: start: 20140522

REACTIONS (3)
  - Upper limb fracture [Recovering/Resolving]
  - Fall [Not Recovered/Not Resolved]
  - Deep brain stimulation [Unknown]

NARRATIVE: CASE EVENT DATE: 2015
